FAERS Safety Report 22202296 (Version 9)
Quarter: 2025Q2

REPORT INFORMATION
  Report Type: Spontaneous
  Country: US (occurrence: US)
  Receive Date: 20230412
  Receipt Date: 20250521
  Transmission Date: 20250716
  Serious: No
  Sender: AMGEN
  Company Number: US-AMGEN-USASP2023062723

PATIENT
  Sex: Female

DRUGS (7)
  1. OTEZLA [Suspect]
     Active Substance: APREMILAST
     Indication: Psoriasis
     Dosage: 30 MILLIGRAM, BID
     Route: 048
     Dates: start: 20201229
  2. OTEZLA [Suspect]
     Active Substance: APREMILAST
     Indication: Movement disorder
  3. PREDNISONE [Suspect]
     Active Substance: PREDNISONE
     Indication: Product used for unknown indication
     Route: 065
  4. PERCOCET [Concomitant]
     Active Substance: ACETAMINOPHEN\OXYCODONE HYDROCHLORIDE
     Route: 065
  5. TREMFYA [Concomitant]
     Active Substance: GUSELKUMAB
     Route: 065
  6. MOUNJARO [Concomitant]
     Active Substance: TIRZEPATIDE
     Route: 065
  7. INGREZZA [Concomitant]
     Active Substance: VALBENAZINE DITOSYLATE

REACTIONS (8)
  - Therapy non-responder [Unknown]
  - Rash [Unknown]
  - COVID-19 [Not Recovered/Not Resolved]
  - Infection [Unknown]
  - Illness [Unknown]
  - Fatigue [Unknown]
  - Discomfort [Unknown]
  - Product dose omission issue [Unknown]
